FAERS Safety Report 6644018-7 (Version None)
Quarter: 2010Q1

REPORT INFORMATION
  Report Type: 
  Country: None (occurrence: None)
  Receive Date: 20100319
  Receipt Date: 20100319
  Transmission Date: 20100710
  Serious: Yes (Disabling)
  Sender: FDA-Public Use
  Company Number: None

PATIENT
  Sex: Female
  Weight: 83.9154 kg

DRUGS (2)
  1. REGLAN [Suspect]
     Indication: GASTRIC DISORDER
     Dosage: 1 4X A DAY ENOUGH TO GET DAMAGE
  2. REGLAN [Suspect]
     Indication: GASTROINTESTINAL HYPOMOTILITY
     Dosage: 1 4X A DAY ENOUGH TO GET DAMAGE

REACTIONS (7)
  - EYE ROLLING [None]
  - FEELING OF BODY TEMPERATURE CHANGE [None]
  - INSOMNIA [None]
  - POLLAKIURIA [None]
  - PSYCHOMOTOR HYPERACTIVITY [None]
  - RESTLESSNESS [None]
  - SINUS DISORDER [None]
